FAERS Safety Report 16856920 (Version 1)
Quarter: 2019Q3

REPORT INFORMATION
  Report Type: Spontaneous
  Country: ES (occurrence: ES)
  Receive Date: 20190926
  Receipt Date: 20190926
  Transmission Date: 20191005
  Serious: Yes (Death, Other)
  Sender: FDA-Public Use
  Company Number: ES-MYLANLABS-2019M1089172

PATIENT

DRUGS (1)
  1. CINACALCET HYDROCHLORIDE. [Suspect]
     Active Substance: CINACALCET HYDROCHLORIDE
     Indication: HYPERPARATHYROIDISM SECONDARY
     Dosage: UNK
     Route: 065

REACTIONS (10)
  - Treatment noncompliance [Unknown]
  - Lichenoid keratosis [Unknown]
  - Bone pain [Unknown]
  - Death [Fatal]
  - Hyperphosphataemia [Unknown]
  - Asphyxia [Unknown]
  - Hypocalcaemia [Unknown]
  - Off label use [Unknown]
  - Drug interaction [Unknown]
  - Adverse reaction [Unknown]
